FAERS Safety Report 9677121 (Version 2)
Quarter: 2013Q4

REPORT INFORMATION
  Report Type: Spontaneous
  Country: US (occurrence: US)
  Receive Date: 20131108
  Receipt Date: 20131115
  Transmission Date: 20140711
  Serious: No
  Sender: FDA-Public Use
  Company Number: US-009507513-1311USA001399

PATIENT
  Sex: Female

DRUGS (2)
  1. FOLLISTIM AQ CARTRIDGE [Suspect]
     Indication: INFERTILITY FEMALE
     Dosage: UNK
     Dates: start: 201212
  2. FOLLISTIM AQ CARTRIDGE [Suspect]
     Dosage: UNK

REACTIONS (1)
  - Drug ineffective [Unknown]
